FAERS Safety Report 12890728 (Version 1)
Quarter: 2016Q4

REPORT INFORMATION
  Report Type: Spontaneous
  Country: US (occurrence: US)
  Receive Date: 20161027
  Receipt Date: 20161027
  Transmission Date: 20170207
  Serious: No
  Sender: FDA-Public Use
  Company Number: US-JAZZ-2016-US-015429

PATIENT
  Sex: Female

DRUGS (18)
  1. AMITRIPTYLINE HCL [Concomitant]
     Active Substance: AMITRIPTYLINE
  2. XYREM [Suspect]
     Active Substance: SODIUM OXYBATE
     Indication: CATAPLEXY
     Dosage: DOSE ADJUSTMENTS
     Route: 048
     Dates: start: 201607, end: 201608
  3. XYREM [Suspect]
     Active Substance: SODIUM OXYBATE
     Dosage: 4.5 G, BID
     Route: 048
     Dates: start: 201608
  4. BOTOX [Concomitant]
     Active Substance: ONABOTULINUMTOXINA
  5. LAMOTRIGINE. [Concomitant]
     Active Substance: LAMOTRIGINE
  6. XYREM [Suspect]
     Active Substance: SODIUM OXYBATE
     Indication: NARCOLEPSY
     Dosage: 2.25 G, BID
     Route: 048
     Dates: start: 201607, end: 201607
  7. ASPIRIN. [Concomitant]
     Active Substance: ASPIRIN
  8. SYNTHROID [Concomitant]
     Active Substance: LEVOTHYROXINE SODIUM
  9. PROAIR HFA [Concomitant]
     Active Substance: ALBUTEROL SULFATE
  10. MELATONIN [Concomitant]
     Active Substance: MELATONIN
  11. TOPAMAX [Concomitant]
     Active Substance: TOPIRAMATE
  12. CAMBIA [Concomitant]
     Active Substance: DICLOFENAC POTASSIUM
  13. ZOMIG [Concomitant]
     Active Substance: ZOLMITRIPTAN
  14. FISH OIL CONCENTRATE [Concomitant]
  15. ADVAIR HFA [Concomitant]
     Active Substance: FLUTICASONE PROPIONATE\SALMETEROL XINAFOATE
  16. HYDROCODONE/ACETAMINOPHEN [Concomitant]
     Active Substance: ACETAMINOPHEN\HYDROCODONE
  17. COENZYME Q10 [Concomitant]
     Active Substance: UBIDECARENONE
  18. XANAX XR [Concomitant]
     Active Substance: ALPRAZOLAM

REACTIONS (3)
  - Alopecia [Not Recovered/Not Resolved]
  - Condition aggravated [Not Recovered/Not Resolved]
  - Stress [Unknown]

NARRATIVE: CASE EVENT DATE: 2016
